FAERS Safety Report 5009673-6 (Version None)
Quarter: 2006Q2

REPORT INFORMATION
  Report Type: 
  Country: None (occurrence: None)
  Receive Date: 20060522
  Receipt Date: 20060511
  Transmission Date: 20061013
  Serious: Yes (Other)
  Sender: FDA-Public Use
  Company Number: 163-20785-06050464

PATIENT
  Age: 13 Year
  Sex: Male

DRUGS (8)
  1. THALOMID [Suspect]
     Indication: ARTERIOVENOUS MALFORMATION
     Dosage: SEE IMAGE
     Route: 048
     Dates: start: 20040901, end: 20060428
  2. THALOMID [Suspect]
     Indication: ARTERIOVENOUS MALFORMATION
     Dosage: SEE IMAGE
     Route: 048
     Dates: start: 20060429
  3. DOXYCYCLINE [Suspect]
     Dates: start: 20060101
  4. DIAMOX [Concomitant]
  5. CELEBREX [Concomitant]
  6. DIGOXIN [Concomitant]
  7. PLAVIX [Concomitant]
  8. ASPIRIN [Concomitant]

REACTIONS (5)
  - BENIGN INTRACRANIAL HYPERTENSION [None]
  - HEADACHE [None]
  - PAIN [None]
  - SCIATIC NERVE INJURY [None]
  - VISION BLURRED [None]
